FAERS Safety Report 17407258 (Version 1)
Quarter: 2020Q1

REPORT INFORMATION
  Report Type: Spontaneous
  Country: DE (occurrence: DE)
  Receive Date: 20200212
  Receipt Date: 20200212
  Transmission Date: 20200409
  Serious: Yes (Congenital Anomaly, Other)
  Sender: FDA-Public Use
  Company Number: DE-TORRENT-00016735

PATIENT
  Age: 1 Day
  Sex: Female
  Weight: 2 kg

DRUGS (3)
  1. FOLSAN [Concomitant]
     Active Substance: FOLIC ACID
     Indication: PROPHYLAXIS OF NEURAL TUBE DEFECT
     Dosage: 5 [MG/D]
     Route: 064
     Dates: start: 20181105, end: 20190712
  2. INOVELON [Suspect]
     Active Substance: RUFINAMIDE
     Indication: EPILEPSY CONGENITAL
     Dosage: 1600 [MG/D]
     Route: 064
     Dates: start: 20181005, end: 20190712
  3. TOPIRAMATE. [Suspect]
     Active Substance: TOPIRAMATE
     Indication: EPILEPSY
     Dosage: 300 [MG/D] 3 SEPARATED DOSES
     Route: 064
     Dates: start: 20181005, end: 20190712

REACTIONS (2)
  - Foetal exposure during pregnancy [Unknown]
  - Small for dates baby [Recovered/Resolved]

NARRATIVE: CASE EVENT DATE: 20181005
